FAERS Safety Report 4407513-7 (Version None)
Quarter: 2004Q3

REPORT INFORMATION
  Report Type: 
  Country: None (occurrence: None)
  Receive Date: 20040721
  Receipt Date: 20040716
  Transmission Date: 20050211
  Serious: Yes (Other)
  Sender: FDA-Public Use
  Company Number: GB-JNJFOC-20040704746

PATIENT
  Age: 7 Month
  Sex: Female

DRUGS (1)
  1. TOPAMAX [Suspect]
     Indication: CONVULSION

REACTIONS (3)
  - CONVULSION [None]
  - PALLOR [None]
  - SKIN DISCOLOURATION [None]
